FAERS Safety Report 4863495-5 (Version None)
Quarter: 2005Q4

REPORT INFORMATION
  Report Type: 
  Country: None (occurrence: None)
  Receive Date: 20051222
  Receipt Date: 20050308
  Transmission Date: 20060501
  Serious: No
  Sender: FDA-Public Use
  Company Number: US-GLAXOSMITHKLINE-A0548854A

PATIENT
  Age: 35 Year
  Sex: Female

DRUGS (7)
  1. FLONASE [Suspect]
     Dosage: 2SPR AT NIGHT
     Route: 045
  2. SINGULAIR [Concomitant]
  3. PREVACID [Concomitant]
  4. ALLEGRA [Concomitant]
  5. LO/OVRAL [Concomitant]
  6. ENBREL [Concomitant]
  7. ALBUTEROL [Concomitant]

REACTIONS (3)
  - PHARMACEUTICAL PRODUCT COMPLAINT [None]
  - RETCHING [None]
  - VOMITING [None]
